FAERS Safety Report 17455282 (Version 1)
Quarter: 2020Q1

REPORT INFORMATION
  Report Type: Spontaneous
  Country: US (occurrence: US)
  Receive Date: 20200212
  Receipt Date: 20200212
  Transmission Date: 20200409
  Serious: Yes (Hospitalization)
  Sender: FDA-Public Use
  Company Number: None

PATIENT
  Age: 69 Year
  Sex: Female

DRUGS (18)
  1. TORSEMIDE. [Concomitant]
     Active Substance: TORSEMIDE
  2. PANTROPRAZOLE [Concomitant]
  3. TADALAFIL. [Concomitant]
     Active Substance: TADALAFIL
  4. GABAPENTIN. [Concomitant]
     Active Substance: GABAPENTIN
  5. HYDROXYCHLOROQUINE [Concomitant]
     Active Substance: HYDROXYCHLOROQUINE
  6. ALVESCO HFA [Concomitant]
  7. AMBRISENTAN 10MG TABLETS 30/BO: 10MG [Suspect]
     Active Substance: AMBRISENTAN
     Indication: PULMONARY ARTERIAL HYPERTENSION
     Route: 048
     Dates: start: 201908
  8. VENTOLIN HFA [Concomitant]
     Active Substance: ALBUTEROL SULFATE
  9. SPIRONOLACTONE. [Concomitant]
     Active Substance: SPIRONOLACTONE
  10. ALENDRONATE [Concomitant]
     Active Substance: ALENDRONATE SODIUM
  11. FERROUS SULFATE. [Concomitant]
     Active Substance: FERROUS SULFATE
  12. METOCLOPRAMIDE. [Concomitant]
     Active Substance: METOCLOPRAMIDE
  13. AMIODARONE [Concomitant]
     Active Substance: AMIODARONE
  14. VITAMIN B12 [Concomitant]
     Active Substance: CYANOCOBALAMIN
  15. UPTRAVI [Concomitant]
     Active Substance: SELEXIPAG
  16. LOPERAMIDE [Concomitant]
     Active Substance: LOPERAMIDE
  17. MVI-MINERALS [Concomitant]
  18. TYLENOL [Concomitant]
     Active Substance: ACETAMINOPHEN

REACTIONS (3)
  - Cardiac failure [None]
  - Syncope [None]
  - Iron deficiency anaemia [None]

NARRATIVE: CASE EVENT DATE: 20200201
